FAERS Safety Report 24417604 (Version 3)
Quarter: 2024Q4

REPORT INFORMATION
  Report Type: Spontaneous
  Country: JP (occurrence: JP)
  Receive Date: 20241009
  Receipt Date: 20241210
  Transmission Date: 20250115
  Serious: Yes (Other)
  Sender: BAYER HEALTHCARE PHARMACEUTICALS INC.
  Company Number: JP-BAYER-2024A143625

PATIENT
  Age: 75 Year
  Sex: Male

DRUGS (1)
  1. STIVARGA [Suspect]
     Active Substance: REGORAFENIB MONOHYDRATE
     Indication: Small intestine adenocarcinoma
     Dosage: DAILY DOSE 120 MG, 3T, THREE-WEEK ADMINISTRATIONS AND ONE-WEEK REST
     Route: 048
     Dates: start: 20240327

REACTIONS (2)
  - Hepatic encephalopathy [Recovered/Resolved]
  - Hyperammonaemia [Recovering/Resolving]

NARRATIVE: CASE EVENT DATE: 20240403
